FAERS Safety Report 13855812 (Version 4)
Quarter: 2017Q3

REPORT INFORMATION
  Report Type: Spontaneous
  Country: FR (occurrence: FR)
  Receive Date: 20170810
  Receipt Date: 20170914
  Transmission Date: 20171127
  Serious: Yes (Hospitalization, Disabling, Other)
  Sender: FDA-Public Use
  Company Number: FR-GILEAD-2017-0287178

PATIENT
  Age: 50 Year
  Sex: Male
  Weight: 67 kg

DRUGS (5)
  1. NORVIR [Concomitant]
     Active Substance: RITONAVIR
  2. TRUVADA [Concomitant]
     Active Substance: EMTRICITABINE\TENOFOVIR DISOPROXIL FUMARATE
  3. GENVOYA [Suspect]
     Active Substance: COBICISTAT\ELVITEGRAVIR\EMTRICITABINE\TENOFOVIR ALAFENAMIDE FUMARATE
     Indication: PRODUCT USED FOR UNKNOWN INDICATION
     Dosage: UNK
     Route: 048
     Dates: start: 20170705, end: 20170725
  4. PREZISTA [Concomitant]
     Active Substance: DARUNAVIR ETHANOLATE
  5. CELSENTRI [Concomitant]
     Active Substance: MARAVIROC

REACTIONS (2)
  - Immune reconstitution inflammatory syndrome [Not Recovered/Not Resolved]
  - Progressive multifocal leukoencephalopathy [Not Recovered/Not Resolved]

NARRATIVE: CASE EVENT DATE: 20170724
